FAERS Safety Report 11780341 (Version 1)
Quarter: 2015Q4

REPORT INFORMATION
  Report Type: Spontaneous
  Country: US (occurrence: US)
  Receive Date: 20151126
  Receipt Date: 20151126
  Transmission Date: 20160305
  Serious: No
  Sender: FDA-Public Use
  Company Number: US-JNJFOC-20151018471

PATIENT
  Age: 75 Year
  Sex: Female
  Weight: 44.45 kg

DRUGS (1)
  1. TYLENOL EXTRA STRENGTH [Suspect]
     Active Substance: ACETAMINOPHEN
     Indication: PAIN
     Dosage: 1-2 CAPLETS, 1X DAILY.
     Route: 048

REACTIONS (2)
  - Product difficult to swallow [Unknown]
  - Product use issue [Unknown]
